FAERS Safety Report 6398880-6 (Version None)
Quarter: 2009Q4

REPORT INFORMATION
  Report Type: 
  Country: None (occurrence: None)
  Receive Date: 20091013
  Receipt Date: 20090910
  Transmission Date: 20100525
  Serious: Yes (Death, Hospitalization, Other)
  Sender: FDA-Public Use
  Company Number: -BAXTER-2009BH009537

PATIENT
  Age: 58 Year
  Sex: Female

DRUGS (1)
  1. HEPARIN SODIUM INJECTION [Suspect]
     Indication: THROMBOSIS PROPHYLAXIS
     Route: 042
     Dates: start: 20070518, end: 20070604

REACTIONS (11)
  - ACUTE RESPIRATORY DISTRESS SYNDROME [None]
  - BALANCE DISORDER [None]
  - DECREASED APPETITE [None]
  - DYSPNOEA [None]
  - HYPERSENSITIVITY [None]
  - HYPOTENSION [None]
  - LETHARGY [None]
  - NAUSEA [None]
  - ORGAN FAILURE [None]
  - PULMONARY HAEMORRHAGE [None]
  - UNRESPONSIVE TO STIMULI [None]
